FAERS Safety Report 9249103 (Version 1)
Quarter: 2013Q1

REPORT INFORMATION
  Report Type: Spontaneous
  Country: US (occurrence: None)
  Receive Date: 20130305
  Receipt Date: 20130305
  Transmission Date: 20140127
  Serious: Yes (Other)
  Sender: FDA-Public Use
  Company Number: 163-21880-12061299

PATIENT
  Age: 53 Year
  Sex: Female

DRUGS (12)
  1. REVLIMID [Suspect]
     Indication: PLASMA CELL MYELOMA
     Dosage: 10 MG, AT BEDTIME, PO
     Route: 048
     Dates: start: 20111228
  2. FORTICAL (LEKOVIT CA) (SPRAY (NOT INHALATION) [Concomitant]
  3. GLYBURIDE (GLIBENCLAMIDE) (TABLETS) [Concomitant]
  4. HYDROMORPHONE (HYDROMORPHONE) (TABLETS) [Concomitant]
  5. LEXAPRO (ESCITALOPRAM OXALATE) (TABLETS) [Concomitant]
  6. METFORMIN HCL (METFORMIN HYDROCHLORIDE) (TABLETS) [Concomitant]
  7. MORPHINE SULFATE (MORPHINE SULFATE) (TABLETS) [Concomitant]
  8. POLYETHYLENE GLYCOL 3350 (MACROGOL 3350) (POWDER) [Concomitant]
  9. POTASSIUM (POTASSIUM) (TABLETS) [Concomitant]
  10. SIMVASTATIN [Concomitant]
  11. WARFARIN SODIUM (WARFARIN SODIUM) (TABLETS) [Concomitant]
  12. LOVENOX (HEPARIN-FRACTION, SODIUM SALT) [Concomitant]

REACTIONS (1)
  - Deep vein thrombosis [None]
